FAERS Safety Report 18109044 (Version 4)
Quarter: 2022Q2

REPORT INFORMATION
  Report Type: Spontaneous
  Country: US (occurrence: US)
  Receive Date: 20200804
  Receipt Date: 20220406
  Transmission Date: 20220721
  Serious: No
  Sender: FDA-Public Use
  Company Number: US-PFIZER INC-2020294877

PATIENT
  Age: 69 Year
  Sex: Female
  Weight: 70.31 kg

DRUGS (5)
  1. IBRANCE [Suspect]
     Active Substance: PALBOCICLIB
     Indication: Breast cancer female
     Dosage: 125 MG
     Dates: start: 20190826
  2. IBRANCE [Suspect]
     Active Substance: PALBOCICLIB
     Indication: Breast cancer stage IV
     Dosage: 125 MG, DAILY [QD (EVERYDAY) X 21 DAYS]
     Dates: start: 20190830
  3. IBRANCE [Suspect]
     Active Substance: PALBOCICLIB
     Indication: Metastases to spine
     Dosage: 125 MG, CYCLIC (DAILY FOR 21 DAYS ON,OFF 7 DAYS)
     Dates: start: 20200304
  4. IBRANCE [Suspect]
     Active Substance: PALBOCICLIB
     Dosage: 125 MG
     Dates: start: 20200430
  5. IBRANCE [Suspect]
     Active Substance: PALBOCICLIB
     Dosage: 125 MG, CYCLIC(ONCE A DAY FOR 21 DAYS; THEN OFF FOR 7 DAYS)

REACTIONS (6)
  - Product dose omission issue [Not Recovered/Not Resolved]
  - White blood cell count decreased [Unknown]
  - Red blood cell count decreased [Unknown]
  - Fatigue [Unknown]
  - Product storage error [Unknown]
  - Poor quality product administered [Unknown]

NARRATIVE: CASE EVENT DATE: 20210712
